FAERS Safety Report 17110861 (Version 1)
Quarter: 2019Q4

REPORT INFORMATION
  Report Type: Report from Study
  Country: ZA (occurrence: ZA)
  Receive Date: 20191204
  Receipt Date: 20191204
  Transmission Date: 20200122
  Serious: Yes (Hospitalization)
  Sender: FDA-Public Use
  Company Number: NVSC2019ZA052220

PATIENT
  Age: 65 Year
  Sex: Female

DRUGS (1)
  1. COTAREG [Suspect]
     Active Substance: HYDROCHLOROTHIAZIDE\VALSARTAN
     Indication: HYPERTENSION
     Dosage: 1 DF, QD (12.5 MG HYDROCHLOROTHIAZIDE, 160 MG VALSARTAN)
     Route: 048

REACTIONS (1)
  - Heart rate abnormal [Unknown]

NARRATIVE: CASE EVENT DATE: 201911
